FAERS Safety Report 5489104-2 (Version None)
Quarter: 2007Q4

REPORT INFORMATION
  Report Type: 
  Country: None (occurrence: None)
  Receive Date: 20071005
  Receipt Date: 20070726
  Transmission Date: 20080405
  Serious: Yes (Hospitalization)
  Sender: FDA-Public Use
  Company Number: PHEH2007US10414

PATIENT
  Age: 85 Year

DRUGS (3)
  1. TEKTURNA [Suspect]
  2. ASPIRIN [Concomitant]
  3. TENORMIN [Concomitant]

REACTIONS (2)
  - ANGIOEDEMA [None]
  - SWOLLEN TONGUE [None]
